FAERS Safety Report 6300323-5 (Version None)
Quarter: 2009Q3

REPORT INFORMATION
  Report Type: 
  Country: None (occurrence: None)
  Receive Date: 20090804
  Receipt Date: 20090727
  Transmission Date: 20100115
  Serious: Yes (Death, Hospitalization)
  Sender: FDA-Public Use
  Company Number: WAES 0808AUS00320

PATIENT
  Age: 85 Year
  Sex: Male

DRUGS (5)
  1. ZOLINZA [Suspect]
     Indication: MYCOSIS FUNGOIDES
     Dosage: 400 MG/DAILY PO ; 400 MG/DAILY PO ; 300 MG/DAILY PO ; 300 MG/DAILY PO ;300 MG/DAILY PO
     Route: 048
     Dates: start: 20080819, end: 20080821
  2. ZOLINZA [Suspect]
     Indication: MYCOSIS FUNGOIDES
     Dosage: 400 MG/DAILY PO ; 400 MG/DAILY PO ; 300 MG/DAILY PO ; 300 MG/DAILY PO ;300 MG/DAILY PO
     Route: 048
     Dates: start: 20080826, end: 20080915
  3. ZOLINZA [Suspect]
     Indication: MYCOSIS FUNGOIDES
     Dosage: 400 MG/DAILY PO ; 400 MG/DAILY PO ; 300 MG/DAILY PO ; 300 MG/DAILY PO ;300 MG/DAILY PO
     Route: 048
     Dates: end: 20081020
  4. ZOLINZA [Suspect]
     Indication: MYCOSIS FUNGOIDES
     Dosage: 400 MG/DAILY PO ; 400 MG/DAILY PO ; 300 MG/DAILY PO ; 300 MG/DAILY PO ;300 MG/DAILY PO
     Route: 048
     Dates: start: 20081201, end: 20081228
  5. ZOLINZA [Suspect]
     Indication: MYCOSIS FUNGOIDES
     Dosage: 400 MG/DAILY PO ; 400 MG/DAILY PO ; 300 MG/DAILY PO ; 300 MG/DAILY PO ;300 MG/DAILY PO
     Route: 048
     Dates: start: 20081110

REACTIONS (7)
  - CACHEXIA [None]
  - CARDIAC FAILURE [None]
  - CELLULITIS [None]
  - DYSPHAGIA [None]
  - INFECTION [None]
  - NAUSEA [None]
  - PNEUMONIA [None]
